FAERS Safety Report 13918337 (Version 1)
Quarter: 2017Q3

REPORT INFORMATION
  Report Type: Spontaneous
  Country: US (occurrence: US)
  Receive Date: 20170829
  Receipt Date: 20170829
  Transmission Date: 20171127
  Serious: No
  Sender: FDA-Public Use
  Company Number: US-SA-2017SA140861

PATIENT
  Age: 34 Year
  Sex: Male

DRUGS (2)
  1. FABRAZYME [Suspect]
     Active Substance: AGALSIDASE BETA
     Dosage: FREQUENCY : Q2 WEEKS
     Route: 041
     Dates: start: 201702
  2. FABRAZYME [Suspect]
     Active Substance: AGALSIDASE BETA
     Dosage: FREQUENCY : Q2 WEEKS
     Route: 041
     Dates: start: 201702

REACTIONS (7)
  - Muscular weakness [Unknown]
  - Intentional product misuse [Unknown]
  - Hypersensitivity [Unknown]
  - Feeling cold [Unknown]
  - Headache [Unknown]
  - Tremor [Unknown]
  - Headache [Unknown]

NARRATIVE: CASE EVENT DATE: 2017
